FAERS Safety Report 18321527 (Version 1)
Quarter: 2020Q3

REPORT INFORMATION
  Report Type: Spontaneous
  Country: CN (occurrence: CN)
  Receive Date: 20200928
  Receipt Date: 20200928
  Transmission Date: 20201103
  Serious: Yes (Other)
  Sender: FDA-Public Use
  Company Number: CN-ASTRAZENECA-2020SF22564

PATIENT
  Age: 25203 Day
  Sex: Male
  Weight: 60 kg

DRUGS (2)
  1. PULMICORT TURBUHALER [Suspect]
     Active Substance: BUDESONIDE
     Indication: COR PULMONALE
     Route: 055
     Dates: start: 20200915, end: 20200916
  2. FLUIMUCIL [Suspect]
     Active Substance: ACETYLCYSTEINE
     Indication: COR PULMONALE
     Route: 055
     Dates: start: 20200915, end: 20200916

REACTIONS (2)
  - Agitation [Recovering/Resolving]
  - Dyspnoea [Recovering/Resolving]

NARRATIVE: CASE EVENT DATE: 20200916
